FAERS Safety Report 11989130 (Version 1)
Quarter: 2016Q1

REPORT INFORMATION
  Report Type: Spontaneous
  Country: US (occurrence: US)
  Receive Date: 20160202
  Receipt Date: 20160202
  Transmission Date: 20160526
  Serious: Yes (Other)
  Sender: FDA-Public Use
  Company Number: US-PFIZER INC-2016049353

PATIENT
  Age: 54 Year
  Sex: Female
  Weight: 99.8 kg

DRUGS (6)
  1. METOPROLOL. [Concomitant]
     Active Substance: METOPROLOL
     Indication: HEART RATE INCREASED
     Dosage: 2 PILLS EVERY 12 HOURS
     Route: 048
  2. WARFARIN [Concomitant]
     Active Substance: WARFARIN
     Indication: THROMBOSIS
     Dosage: UNK
     Dates: start: 2005, end: 2011
  3. TIKOSYN [Suspect]
     Active Substance: DOFETILIDE
     Indication: ATRIAL FIBRILLATION
     Dosage: 250MCG CAPSULES EVERY 12 HOURS
     Route: 048
     Dates: end: 20151201
  4. WARFARIN [Concomitant]
     Active Substance: WARFARIN
     Indication: THROMBOTIC STROKE
  5. TIKOSYN [Suspect]
     Active Substance: DOFETILIDE
     Dosage: 375MCG EVERY 12
     Route: 048
     Dates: start: 20151201
  6. PRADAXA [Concomitant]
     Active Substance: DABIGATRAN ETEXILATE MESYLATE
     Indication: THROMBOTIC STROKE
     Dosage: UNK

REACTIONS (5)
  - Compression fracture [Recovering/Resolving]
  - Drug ineffective [Recovering/Resolving]
  - Palpitations [Unknown]
  - Fall [Unknown]
  - Dyspnoea [Unknown]

NARRATIVE: CASE EVENT DATE: 20151201
